FAERS Safety Report 11146989 (Version 2)
Quarter: 2015Q2

REPORT INFORMATION
  Report Type: Report from Study
  Country: JP (occurrence: JP)
  Receive Date: 20150528
  Receipt Date: 20150608
  Transmission Date: 20150821
  Serious: Yes (Hospitalization)
  Sender: FDA-Public Use
  Company Number: JP-ABBVIE-15P-087-1394209-00

PATIENT
  Age: 31 Year
  Sex: Male
  Weight: 94 kg

DRUGS (24)
  1. RINBETA PF [Concomitant]
     Active Substance: BETAMETHASONE SODIUM PHOSPHATE
     Indication: UVEITIS
     Route: 061
     Dates: start: 20140807, end: 20140902
  2. CRAVIT [Concomitant]
     Active Substance: LEVOFLOXACIN
     Indication: POST PROCEDURAL INFECTION
     Route: 048
     Dates: start: 20140823, end: 20140827
  3. SANDOL [Concomitant]
     Indication: IRIS ADHESIONS
     Route: 061
     Dates: start: 20150218
  4. CRAVIT [Concomitant]
     Active Substance: LEVOFLOXACIN
     Indication: PROPHYLAXIS
     Route: 061
     Dates: start: 20141211
  5. PREDONISOLONE [Concomitant]
     Route: 048
     Dates: start: 20141120
  6. RINBETA PF [Concomitant]
     Active Substance: BETAMETHASONE SODIUM PHOSPHATE
     Dosage: (OD 4XD)(OU 6XD)
     Route: 061
     Dates: start: 20150218
  7. CRAVIT [Concomitant]
     Active Substance: LEVOFLOXACIN
     Route: 061
     Dates: start: 20141218
  8. PREDONISOLONE [Concomitant]
     Indication: UVEITIS
     Route: 048
     Dates: start: 20140417, end: 20140618
  9. PREDONISOLONE [Concomitant]
     Route: 048
     Dates: start: 20140918, end: 20141015
  10. PREDONISOLONE [Concomitant]
     Route: 048
     Dates: start: 20141029, end: 20141119
  11. HUMIRA [Suspect]
     Active Substance: ADALIMUMAB
     Indication: UVEITIS
     Route: 058
     Dates: start: 20131017, end: 20150423
  12. MYDRIN-P [Concomitant]
     Indication: PROPHYLAXIS
     Route: 061
     Dates: start: 20131009, end: 20131211
  13. MYDRIN-P [Concomitant]
     Indication: IRIS ADHESIONS
  14. DIAGNOGREEN [Concomitant]
     Indication: PRODUCT USED FOR UNKNOWN INDICATION
     Route: 042
     Dates: start: 20121214
  15. RINBETA PF [Concomitant]
     Active Substance: BETAMETHASONE SODIUM PHOSPHATE
     Indication: POST PROCEDURAL INFLAMMATION
     Route: 061
     Dates: start: 20140903, end: 20141209
  16. NEORAL [Concomitant]
     Active Substance: CYCLOSPORINE
     Route: 048
     Dates: start: 20140821
  17. COSOPT [Concomitant]
     Active Substance: DORZOLAMIDE HYDROCHLORIDE\TIMOLOL MALEATE
     Indication: OCULAR HYPERTENSION
     Dosage: OD
     Route: 061
     Dates: start: 20150227
  18. MYDRIN-P [Concomitant]
     Indication: FUNDOSCOPY
     Route: 061
     Dates: start: 20130118
  19. RINBETA PF [Concomitant]
     Active Substance: BETAMETHASONE SODIUM PHOSPHATE
     Indication: PROPHYLAXIS
     Route: 061
     Dates: start: 20141211, end: 20150217
  20. RINBETA PF [Concomitant]
     Active Substance: BETAMETHASONE SODIUM PHOSPHATE
     Route: 061
     Dates: start: 20141211, end: 20150217
  21. NEORAL [Concomitant]
     Active Substance: CYCLOSPORINE
     Indication: UVEITIS
     Route: 048
     Dates: start: 20140807, end: 20140820
  22. PREDONISOLONE [Concomitant]
     Route: 048
     Dates: start: 20140904, end: 20140917
  23. SANDOL [Concomitant]
     Indication: PROPHYLAXIS
  24. FLUORESCITE [Concomitant]
     Active Substance: D+C YELLOW NO. 8
     Indication: PRODUCT USED FOR UNKNOWN INDICATION
     Route: 042
     Dates: start: 20121214

REACTIONS (1)
  - Cataract [Recovered/Resolved]

NARRATIVE: CASE EVENT DATE: 20150306
